FAERS Safety Report 18942655 (Version 3)
Quarter: 2021Q1

REPORT INFORMATION
  Report Type: Report from Study
  Country: CA (occurrence: CA)
  Receive Date: 20210225
  Receipt Date: 20210303
  Transmission Date: 20210420
  Serious: Yes (Death, Hospitalization)
  Sender: FDA-Public Use
  Company Number: CA-JNJFOC-20210231364

PATIENT
  Age: 69 Year
  Sex: Male
  Weight: 88 kg

DRUGS (1)
  1. REMICADE [Suspect]
     Active Substance: INFLIXIMAB
     Indication: ANKYLOSING SPONDYLITIS
     Route: 042
     Dates: start: 20060119

REACTIONS (4)
  - Myalgia [Unknown]
  - Haemoptysis [Not Recovered/Not Resolved]
  - COVID-19 [Fatal]
  - Arthralgia [Unknown]

NARRATIVE: CASE EVENT DATE: 20210217
